FAERS Safety Report 19350739 (Version 2)
Quarter: 2021Q2

REPORT INFORMATION
  Report Type: Spontaneous
  Country: JP (occurrence: JP)
  Receive Date: 20210531
  Receipt Date: 20210608
  Transmission Date: 20210717
  Serious: Yes (Other)
  Sender: FDA-Public Use
  Company Number: JP-SUN PHARMACEUTICAL INDUSTRIES LTD-2021RR-298620

PATIENT
  Age: 70 Year
  Sex: Female

DRUGS (4)
  1. PAROXETINE. [Suspect]
     Active Substance: PAROXETINE
     Indication: MAJOR DEPRESSION
     Dosage: 20 MILLIGRAM, DAILY
     Route: 065
  2. PAROXETINE. [Suspect]
     Active Substance: PAROXETINE
     Indication: SCHIZOPHRENIA
  3. PEROSPIRONE [Suspect]
     Active Substance: PEROSPIRONE
     Indication: MAJOR DEPRESSION
     Dosage: UNK
     Route: 065
  4. PEROSPIRONE [Suspect]
     Active Substance: PEROSPIRONE
     Indication: SCHIZOPHRENIA

REACTIONS (1)
  - Parkinsonism [Recovering/Resolving]
